FAERS Safety Report 9170112 (Version 1)
Quarter: 2013Q1

REPORT INFORMATION
  Report Type: Spontaneous
  Country: US (occurrence: None)
  Receive Date: 20130308
  Receipt Date: 20130308
  Transmission Date: 20140127
  Serious: Yes (Hospitalization, Other)
  Sender: FDA-Public Use
  Company Number: 20130076

PATIENT
  Age: 66 Year
  Sex: Female

DRUGS (7)
  1. METHYLENE BLUE INJECTION, USP (0301-10) 1% [Suspect]
     Indication: TOXIC ENCEPHALOPATHY
     Route: 042
  2. DEXAMETHASONE SODIUM PHOSPHATE INJECTION, USP (4901-25) 4 MG/ML [Concomitant]
  3. CARBOPLATIN [Concomitant]
  4. APREPITANT [Concomitant]
  5. BUPROPION [Concomitant]
  6. IFOSFAMIDE [Concomitant]
  7. ETOPOSIDE [Concomitant]

REACTIONS (15)
  - Agitation [None]
  - Hyperreflexia [None]
  - Mydriasis [None]
  - Tachycardia [None]
  - Tachypnoea [None]
  - Serotonin syndrome [None]
  - Drug interaction [None]
  - Blood urea increased [None]
  - Blood creatinine increased [None]
  - Infection [None]
  - Deep vein thrombosis [None]
  - Aspiration [None]
  - Foreign body aspiration [None]
  - Pleural effusion [None]
  - Pulmonary oedema [None]
